FAERS Safety Report 16534881 (Version 1)
Quarter: 2019Q3

REPORT INFORMATION
  Report Type: Spontaneous
  Country: US (occurrence: US)
  Receive Date: 20190705
  Receipt Date: 20190705
  Transmission Date: 20191004
  Serious: No
  Sender: FDA-Public Use
  Company Number: US-GW PHARMA-201904USGW0883

PATIENT

DRUGS (3)
  1. EPIDIOLEX [Suspect]
     Active Substance: CANNABIDIOL
     Indication: AFFECTIVE DISORDER
     Dosage: 200 MILLIGRAM, BID
     Route: 048
     Dates: start: 20190328
  2. EPIDIOLEX [Suspect]
     Active Substance: CANNABIDIOL
     Indication: SEIZURE
     Dosage: 100 MILLIGRAM, BID
     Route: 048
     Dates: start: 20190320, end: 20190327
  3. EPIDIOLEX [Suspect]
     Active Substance: CANNABIDIOL
     Indication: ABNORMAL BEHAVIOUR

REACTIONS (3)
  - Off label use [Unknown]
  - Aggression [Unknown]
  - Mood altered [Unknown]
